FAERS Safety Report 5916225-X (Version None)
Quarter: 2008Q4

REPORT INFORMATION
  Report Type: 
  Country: None (occurrence: None)
  Receive Date: 20081013
  Receipt Date: 20081001
  Transmission Date: 20090506
  Serious: Yes (Other)
  Sender: FDA-Public Use
  Company Number: US-CELGENEUS-163-21880-07020619

PATIENT
  Sex: Male
  Weight: 76.1 kg

DRUGS (3)
  1. REVLIMID [Suspect]
     Route: 048
     Dates: start: 20061213
  2. DEXAMETHASONE [Suspect]
     Route: 048
     Dates: start: 20061213
  3. BEVACIZUMAB [Suspect]
     Route: 051
     Dates: start: 20061213

REACTIONS (6)
  - LYMPHOPENIA [None]
  - OEDEMA PERIPHERAL [None]
  - PAIN IN EXTREMITY [None]
  - RASH [None]
  - STOMATITIS [None]
  - THROMBOSIS [None]
